FAERS Safety Report 10447264 (Version 2)
Quarter: 2014Q3

REPORT INFORMATION
  Report Type: Other
  Country: IT (occurrence: IT)
  Receive Date: 20140911
  Receipt Date: 20140925
  Transmission Date: 20150326
  Serious: Yes (Other)
  Sender: FDA-Public Use
  Company Number: IT-MYLAN-2014M1003368

PATIENT

DRUGS (1)
  1. ATORVASTATIN [Suspect]
     Active Substance: ATORVASTATIN
     Indication: HYPERCHOLESTEROLAEMIA
     Dosage: 20 MG, QD
     Dates: start: 20130101, end: 20140331

REACTIONS (2)
  - Premature ejaculation [Unknown]
  - Erectile dysfunction [Unknown]

NARRATIVE: CASE EVENT DATE: 20140301
